FAERS Safety Report 12471863 (Version 1)
Quarter: 2016Q2

REPORT INFORMATION
  Report Type: Spontaneous
  Country: US (occurrence: US)
  Receive Date: 20160616
  Receipt Date: 20160616
  Transmission Date: 20160815
  Serious: No
  Sender: FDA-Public Use
  Company Number: US-TEVA-666496ACC

PATIENT
  Age: 37 Year
  Sex: Female
  Weight: 64.47 kg

DRUGS (2)
  1. PLAN B ONE-STEP [Suspect]
     Active Substance: LEVONORGESTREL
     Indication: POST COITAL CONTRACEPTION
  2. FIBER VITAMIN [Concomitant]
     Indication: DYSURIA

REACTIONS (3)
  - Abdominal distension [Recovered/Resolved]
  - Dysmenorrhoea [Recovered/Resolved]
  - Abdominal pain [Recovered/Resolved]

NARRATIVE: CASE EVENT DATE: 20160601
